FAERS Safety Report 5341368-1 (Version None)
Quarter: 2007Q2

REPORT INFORMATION
  Report Type: 
  Country: None (occurrence: None)
  Receive Date: 20070404
  Receipt Date: 20070117
  Transmission Date: 20071010
  Serious: Yes (Hospitalization, Other)
  Sender: FDA-Public Use
  Company Number: 2006136198

PATIENT
  Age: 41 Year
  Sex: Female
  Weight: 92.1 kg

DRUGS (2)
  1. GEODON [Suspect]
     Dosage: (160 MG)
     Dates: start: 20030101
  2. METFORMIN HCL [Concomitant]

REACTIONS (1)
  - SYNCOPE [None]
